FAERS Safety Report 24222274 (Version 1)
Quarter: 2024Q3

REPORT INFORMATION
  Report Type: Spontaneous
  Country: US (occurrence: US)
  Receive Date: 20240819
  Receipt Date: 20240819
  Transmission Date: 20241017
  Serious: No
  Sender: TAKEDA
  Company Number: US-TAKEDA-2024TUS081039

PATIENT
  Age: 62 Year
  Sex: Female
  Weight: 91 kg

DRUGS (3)
  1. VYVANSE [Suspect]
     Active Substance: LISDEXAMFETAMINE DIMESYLATE
     Indication: Shift work disorder
     Dosage: UNK UNK, QD
     Route: 065
     Dates: start: 2019, end: 2022
  2. ADDERALL [Suspect]
     Active Substance: AMPHETAMINE ASPARTATE\AMPHETAMINE SULFATE\DEXTROAMPHETAMINE SACCHARATE\DEXTROAMPHETAMINE SULFATE
     Indication: Product used for unknown indication
     Dosage: UNK
     Route: 065
  3. CAFFEINE [Concomitant]
     Active Substance: CAFFEINE
     Indication: Somnolence
     Route: 065

REACTIONS (9)
  - Obsessive-compulsive disorder [Unknown]
  - Discomfort [Unknown]
  - Feeling abnormal [Unknown]
  - Abnormal behaviour [Unknown]
  - Drug ineffective [Unknown]
  - Inappropriate schedule of product administration [Unknown]
  - Off label use [Unknown]
  - Insomnia [Unknown]
  - Feeling jittery [Unknown]
